FAERS Safety Report 8420837-1 (Version None)
Quarter: 2012Q2

REPORT INFORMATION
  Report Type: 
  Country: None (occurrence: None)
  Receive Date: 20120530
  Receipt Date: 20120520
  Transmission Date: 20120825
  Serious: Yes (Hospitalization, Disabling)
  Sender: FDA-Public Use
  Company Number: AU-DEXPHARM-20120587

PATIENT
  Age: 32 Year
  Sex: Female

DRUGS (1)
  1. CHLORHEXIDINE GLUCONATE [Suspect]
     Indication: LABOUR PAIN
     Dosage: DOSE: 8 ML MILLILITRE
     Route: 008
     Dates: start: 20100626

REACTIONS (6)
  - WRONG DRUG ADMINISTERED [None]
  - SPINAL CORD PARALYSIS [None]
  - INCORRECT ROUTE OF DRUG ADMINISTRATION [None]
  - MUSCLE SPASMS [None]
  - MATERNAL EXPOSURE DURING PREGNANCY [None]
  - HYDROCEPHALUS [None]
